FAERS Safety Report 6334570-3 (Version None)
Quarter: 2009Q3

REPORT INFORMATION
  Report Type: 
  Country: None (occurrence: None)
  Receive Date: 20090831
  Receipt Date: 20090825
  Transmission Date: 20100115
  Serious: Yes (Death, Hospitalization)
  Sender: FDA-Public Use
  Company Number: PHHY2009BR35942

PATIENT
  Age: 93 Year
  Sex: Female

DRUGS (3)
  1. EXFORGE [Suspect]
     Indication: HYPERTENSION
     Dosage: (160/5 MG) 1 TABLET OF EACH SUBSTANCE DIALY
     Dates: start: 20070101, end: 20080101
  2. LESCOL XL [Suspect]
     Dosage: 80 MG, UNK
  3. DIOVAN AMLO FIX [Suspect]
     Indication: HYPERTENSION
     Dosage: 1 TABLET DAILY
     Dates: start: 20080101

REACTIONS (1)
  - MULTI-ORGAN FAILURE [None]
